FAERS Safety Report 22046716 (Version 1)
Quarter: 2023Q1

REPORT INFORMATION
  Report Type: Spontaneous
  Country: US (occurrence: US)
  Receive Date: 20230228
  Receipt Date: 20230228
  Transmission Date: 20230418
  Serious: Yes (Other)
  Sender: FDA-Public Use
  Company Number: US-NOVEN PHARMACEUTICALS, INC.-2023-NOV-US000181

PATIENT
  Age: 44 Year
  Sex: Male
  Weight: 108.84 kg

DRUGS (2)
  1. DAYTRANA [Suspect]
     Active Substance: METHYLPHENIDATE
     Indication: Attention deficit hyperactivity disorder
     Dosage: 30 MG, 9 HOURS
     Route: 062
  2. SECUADO [Concomitant]
     Active Substance: ASENAPINE
     Indication: Affective disorder
     Dosage: UNK, UNKNOWN
     Route: 062

REACTIONS (4)
  - Device adhesion issue [Not Recovered/Not Resolved]
  - Application site irritation [Recovered/Resolved]
  - Application site erythema [Recovered/Resolved]
  - Off label use [Not Recovered/Not Resolved]

NARRATIVE: CASE EVENT DATE: 20230101
